FAERS Safety Report 17555842 (Version 1)
Quarter: 2020Q1

REPORT INFORMATION
  Report Type: Spontaneous
  Country: US (occurrence: US)
  Receive Date: 20200318
  Receipt Date: 20200318
  Transmission Date: 20200409
  Serious: Yes (Other)
  Sender: FDA-Public Use
  Company Number: None

PATIENT
  Age: 72 Year
  Sex: Female
  Weight: 53.1 kg

DRUGS (1)
  1. CAPECTIABINE [Suspect]
     Active Substance: CAPECITABINE
     Indication: BREAST CANCER FEMALE
     Dosage: ?          OTHER FREQUENCY:TWICE A WEEK;?
     Route: 048
     Dates: start: 20191002

REACTIONS (2)
  - Weight decreased [None]
  - Hypogeusia [None]

NARRATIVE: CASE EVENT DATE: 20200318
